FAERS Safety Report 4454929-9 (Version None)
Quarter: 2004Q3

REPORT INFORMATION
  Report Type: 
  Country: None (occurrence: None)
  Receive Date: 20040825
  Receipt Date: 20040507
  Transmission Date: 20050211
  Serious: No
  Sender: FDA-Public Use
  Company Number: 206371

PATIENT
  Age: 34 Year
  Sex: Male

DRUGS (2)
  1. RAPTIVA (EFALIZUMAB) PWDR + SOLVENT INJECTION SOLN 125 MG [Suspect]
     Indication: PSORIASIS
     Dosage: 0.6 ML, 1/WEEK, SUBCUTANEOUS
     Route: 058
     Dates: start: 20040504
  2. PERCOCET [Concomitant]

REACTIONS (2)
  - HEADACHE [None]
  - NAUSEA [None]
